FAERS Safety Report 25278051 (Version 1)
Quarter: 2025Q2

REPORT INFORMATION
  Report Type: Spontaneous
  Country: US (occurrence: None)
  Receive Date: 20250506
  Receipt Date: 20250506
  Transmission Date: 20250716
  Serious: Yes (Death)
  Sender: FDA-CTU
  Company Number: None

PATIENT
  Age: 63 Year
  Sex: Male
  Weight: 63.5 kg

DRUGS (20)
  1. KEPPRA [Suspect]
     Active Substance: LEVETIRACETAM
  2. Botox 100 unit injection [Concomitant]
  3. AMLODIPINE [Suspect]
     Active Substance: AMLODIPINE BESYLATE
  4. OMEPRAZOLE [Suspect]
     Active Substance: OMEPRAZOLE
  5. Lexapro 5Mg [Concomitant]
  6. LINZESS [Concomitant]
     Active Substance: LINACLOTIDE
  7. LIPITOR [Concomitant]
     Active Substance: ATORVASTATIN CALCIUM
  8. LITHIUM CARBONATE [Concomitant]
     Active Substance: LITHIUM CARBONATE
  9. LORAZEPAM [Concomitant]
     Active Substance: LORAZEPAM
  10. Metoprolol er succincate 25mg [Concomitant]
  11. ACETAMINOPHEN [Suspect]
     Active Substance: ACETAMINOPHEN
  12. ASPIRIN [Suspect]
     Active Substance: ASPIRIN
  13. BACITRACIN [Suspect]
     Active Substance: BACITRACIN
  14. BISACODYL [Suspect]
     Active Substance: BISACODYL
  15. CRANBERRY [Suspect]
     Active Substance: CRANBERRY
  16. FLEET ENEMA [Suspect]
     Active Substance: SODIUM PHOSPHATE, DIBASIC\SODIUM PHOSPHATE, MONOBASIC
  17. FOLIC ACID [Suspect]
     Active Substance: FOLIC ACID
  18. LORATADINE [Suspect]
     Active Substance: LORATADINE
  19. MIRALAX [Suspect]
     Active Substance: POLYETHYLENE GLYCOL 3350
  20. VITAMINS [Suspect]
     Active Substance: VITAMINS

REACTIONS (1)
  - Death [None]

NARRATIVE: CASE EVENT DATE: 20250505
